FAERS Safety Report 21338389 (Version 1)
Quarter: 2022Q3

REPORT INFORMATION
  Report Type: Spontaneous
  Country: AT (occurrence: AT)
  Receive Date: 20220915
  Receipt Date: 20220915
  Transmission Date: 20221026
  Serious: Yes (Hospitalization)
  Sender: FDA-Public Use
  Company Number: AT-ROCHE-2754571

PATIENT
  Age: 44 Year
  Sex: Female
  Weight: 65 kg

DRUGS (22)
  1. PACLITAXEL [Suspect]
     Active Substance: PACLITAXEL
     Indication: Breast cancer metastatic
     Dosage: 138.1 MG/KG, WEEKLY 138.1 MG/KG, WEEKLY, MOST RECENT DOSE PRIOR TO AE 26FEB2020, (1 WEEK)
     Route: 042
     Dates: start: 20181017
  2. CAPECITABINE [Suspect]
     Active Substance: CAPECITABINE
     Indication: Breast cancer metastatic
     Dosage: 2000 MG, FREQ:12 H;MOST RECENT DOSE PRIOR TO AE SEP2021
     Route: 048
     Dates: start: 20200715
  3. DENOSUMAB [Suspect]
     Active Substance: DENOSUMAB
     Indication: Breast cancer metastatic
     Dosage: 120 MG/KG; FREQ:4 WK
     Route: 058
     Dates: start: 20190326
  4. LAPATINIB [Suspect]
     Active Substance: LAPATINIB
     Indication: Breast cancer metastatic
     Dosage: 1250 MG, 1X/DAY, MOST RECENT DOSE PRIOR TO AE 04AUG2021
     Route: 048
     Dates: start: 20200715
  5. PERTUZUMAB [Suspect]
     Active Substance: PERTUZUMAB
     Indication: Breast cancer metastatic
     Dosage: 420 MG, EVERY 3 WEEKS, MOST RECENT DOSE PRIOR TO AE 26FEB2020; EVERY 3 WEEKS
     Route: 042
     Dates: start: 20181016
  6. TRASTUZUMAB [Suspect]
     Active Substance: TRASTUZUMAB
     Indication: Breast cancer metastatic
     Dosage: 6 MG/KG, EVERY 3 WEEKS, MOST RECENT DOSE PRIOR TO AE 26FEB2020; (3 WEEK)
     Route: 042
     Dates: start: 20181016
  7. ADO-TRASTUZUMAB EMTANSINE [Suspect]
     Active Substance: ADO-TRASTUZUMAB EMTANSINE
     Indication: Breast cancer metastatic
     Dosage: 3.6 MG/KG, EVERY 3 WEEKS
     Route: 042
     Dates: start: 20200227, end: 20200703
  8. ASTEC [BUPRENORPHINE] [Concomitant]
     Dosage: UNK; ONGOING = CHECKED
     Dates: start: 20181023
  9. CAPSAICIN [Concomitant]
     Active Substance: CAPSAICIN
     Indication: General physical health deterioration
     Dosage: UNK; ONGOING = NOT CHECKED
     Dates: start: 20200826, end: 20200917
  10. DIPHENHYDRAMINE HYDROCHLORIDE [Concomitant]
     Active Substance: DIPHENHYDRAMINE HYDROCHLORIDE
     Dosage: UNK; ONGOING = CHECKED
  11. EMEND [Concomitant]
     Active Substance: APREPITANT
     Dosage: UNK; ONGOING = CHECKED
     Dates: start: 20181120
  12. DEXAMETHASONE [Concomitant]
     Active Substance: DEXAMETHASONE
     Dosage: UNK; ONGOING = CHECKED
     Dates: start: 20181017
  13. LACTULOSE [Concomitant]
     Active Substance: LACTULOSE
     Dosage: UNK; ONGOING = CHECKED
     Dates: start: 20200826
  14. POLYETHYLENE GLYCOL 3350\POTASSIUM CHLORIDE\SODIUM BICARBONATE\SODIUM [Concomitant]
     Active Substance: POLYETHYLENE GLYCOL 3350\POTASSIUM CHLORIDE\SODIUM BICARBONATE\SODIUM CHLORIDE
     Dosage: UNK; ONGOING = CHECKED
     Dates: start: 20181023
  15. NEURONTIN [Concomitant]
     Active Substance: GABAPENTIN
     Dosage: UNK
     Dates: start: 20181023, end: 20211027
  16. NOVALGIN (METAMIZOLE SODIUM) [Concomitant]
     Active Substance: METAMIZOLE SODIUM
     Dosage: UNK; ONGOING = CHECKED
     Dates: start: 20181023
  17. METOCLOPRAMIDE HYDROCHLORIDE [Concomitant]
     Active Substance: METOCLOPRAMIDE HYDROCHLORIDE
     Dosage: UNK; ONGOING = CHECKED
     Dates: start: 20181023
  18. PARACODIN [DIHYDROCODEINE] [Concomitant]
     Dosage: UNK; ONGOING = CHECKED
     Dates: start: 20180715
  19. BUPRENORPHINE HYDROCHLORIDE [Concomitant]
     Active Substance: BUPRENORPHINE HYDROCHLORIDE
     Dosage: UNK; ONGOING = CHECKED
     Dates: start: 20181023
  20. RANITIDINE HYDROCHLORIDE [Concomitant]
     Active Substance: RANITIDINE HYDROCHLORIDE
     Dosage: UNK, ONGOING = CHECKED
     Dates: start: 20181017
  21. ZOFRAN [Concomitant]
     Active Substance: ONDANSETRON HYDROCHLORIDE
     Dosage: UNK; ONGOING = CHECKED
     Dates: start: 20181023
  22. ZOFRAN [Concomitant]
     Active Substance: ONDANSETRON HYDROCHLORIDE
     Dosage: UNK; ONGOING = CHECKED
     Dates: start: 20181023

REACTIONS (1)
  - General physical health deterioration [Recovered/Resolved]

NARRATIVE: CASE EVENT DATE: 20200826
